FAERS Safety Report 6899400-X (Version None)
Quarter: 2010Q3

REPORT INFORMATION
  Report Type: 
  Country: None (occurrence: None)
  Receive Date: 20100803
  Receipt Date: 20090516
  Transmission Date: 20110219
  Serious: No
  Sender: FDA-Public Use
  Company Number: US-PFIZER INC-2009181201

PATIENT
  Sex: Female
  Weight: 104.3 kg

DRUGS (16)
  1. GABAPENTIN [Suspect]
     Indication: FIBROMYALGIA
     Dosage: 100 MG, 3X/DAY
     Dates: start: 20090204
  2. LYRICA [Concomitant]
     Indication: FIBROMYALGIA
     Dosage: UNK
     Dates: start: 20070701
  3. CYMBALTA [Concomitant]
     Dosage: UNK
  4. TRAMADOL [Concomitant]
     Dosage: UNK
  5. NEXIUM [Concomitant]
     Dosage: UNK
  6. BENAZEPRIL HYDROCHLORIDE [Concomitant]
     Dosage: UNK
  7. TRICOR [Concomitant]
     Dosage: UNK
  8. MELOXICAM [Concomitant]
     Dosage: UNK
  9. FLEXERIL [Concomitant]
     Dosage: UNK
  10. AMLODIPINE BESILATE [Concomitant]
     Dosage: UNK
  11. BONIVA [Concomitant]
     Dosage: UNK
  12. CENTRUM SILVER [Concomitant]
     Dosage: UNK
  13. ASCORBIC ACID [Concomitant]
     Dosage: UNK
  14. VITAMIN D [Concomitant]
     Dosage: UNK
  15. VITAMIN E [Concomitant]
     Dosage: UNK
  16. OSTEOBIFLEX [Concomitant]
     Dosage: UNK

REACTIONS (1)
  - DRUG INEFFECTIVE [None]
